FAERS Safety Report 5509284-X (Version None)
Quarter: 2007Q4

REPORT INFORMATION
  Report Type: 
  Country: None (occurrence: None)
  Receive Date: 20071107
  Receipt Date: 20071030
  Transmission Date: 20080405
  Serious: Yes (Other)
  Sender: FDA-Public Use
  Company Number: 163-21880-07080379

PATIENT
  Age: 74 Year
  Sex: Male
  Weight: 99.3377 kg

DRUGS (4)
  1. REVLIMID [Suspect]
     Indication: AMYLOIDOSIS
     Dosage: 15 MG, 1 IN 1 D, ORAL
     Route: 048
     Dates: start: 20070801
  2. AMIODARONE HCL [Concomitant]
  3. DEXAMETHASONE TAB [Concomitant]
  4. COUMADIN [Concomitant]

REACTIONS (5)
  - ASTHENIA [None]
  - EYELID OEDEMA [None]
  - PRURITUS [None]
  - VENTRICULAR EXTRASYSTOLES [None]
  - VENTRICULAR TACHYCARDIA [None]
